FAERS Safety Report 7429184-8 (Version None)
Quarter: 2011Q2

REPORT INFORMATION
  Report Type: 
  Country: None (occurrence: None)
  Receive Date: 20110421
  Receipt Date: 20110412
  Transmission Date: 20111010
  Serious: Yes (Disabling, Other)
  Sender: FDA-Public Use
  Company Number: PT-ASTRAZENECA-2011SE20458

PATIENT
  Age: 85 Year
  Sex: Female

DRUGS (3)
  1. LORENIN [Concomitant]
     Indication: ANXIETY
  2. EBIXA [Concomitant]
  3. SEROQUEL [Suspect]
     Route: 048

REACTIONS (3)
  - CEREBROVASCULAR ACCIDENT [None]
  - MUSCULOSKELETAL STIFFNESS [None]
  - VOMITING [None]
